FAERS Safety Report 11898805 (Version 1)
Quarter: 2016Q1

REPORT INFORMATION
  Report Type: Spontaneous
  Country: US (occurrence: US)
  Receive Date: 20160108
  Receipt Date: 20160108
  Transmission Date: 20160526
  Serious: Yes (Hospitalization)
  Sender: FDA-Public Use
  Company Number: US-UNICHEM LABORATORIES LIMITED-UCM201512-000903

PATIENT
  Age: 31 Year
  Sex: Female

DRUGS (2)
  1. AMLODIPINE [Suspect]
     Active Substance: AMLODIPINE BESYLATE
  2. LOSARTAN. [Suspect]
     Active Substance: LOSARTAN

REACTIONS (4)
  - Right ventricular dysfunction [Recovered/Resolved]
  - Overdose [Recovered/Resolved]
  - Headache [Unknown]
  - Shock [Recovered/Resolved]
